FAERS Safety Report 23210694 (Version 3)
Quarter: 2024Q1

REPORT INFORMATION
  Report Type: Spontaneous
  Country: FR (occurrence: FR)
  Receive Date: 20231121
  Receipt Date: 20240104
  Transmission Date: 20240409
  Serious: Yes (Other)
  Sender: FDA-Public Use
  Company Number: FR-ALIMERA SCIENCES LIMITED-FR-A16013-23-000112

PATIENT
  Age: 84 Year
  Sex: Male

DRUGS (1)
  1. ILUVIEN [Suspect]
     Active Substance: FLUOCINOLONE ACETONIDE
     Indication: Eye oedema
     Dosage: 0.25 MICROGRAM, QD - LEFT EYE
     Route: 031
     Dates: start: 202209

REACTIONS (4)
  - Glaucoma [Not Recovered/Not Resolved]
  - Cataract [Unknown]
  - Trabeculectomy [Recovered/Resolved]
  - Off label use [Unknown]

NARRATIVE: CASE EVENT DATE: 20220901
